FAERS Safety Report 5026765-6 (Version None)
Quarter: 2006Q2

REPORT INFORMATION
  Report Type: 
  Country: None (occurrence: None)
  Receive Date: 20060609
  Receipt Date: 20060526
  Transmission Date: 20061013
  Serious: Yes (Hospitalization)
  Sender: FDA-Public Use
  Company Number: 2006001116

PATIENT
  Age: 73 Year
  Sex: Male

DRUGS (9)
  1. TARCEVA [Suspect]
     Indication: BRONCHIAL CARCINOMA
     Dosage: SEE IMAGE
     Route: 048
     Dates: start: 20051221, end: 20060105
  2. TARCEVA [Suspect]
     Indication: BRONCHIAL CARCINOMA
     Dosage: SEE IMAGE
     Route: 048
     Dates: start: 20060113
  3. PRAVASTATIN [Suspect]
  4. ISOSORBIDE MONONITRATE [Suspect]
  5. NICORANDIL [Suspect]
  6. BISOPROLOL [Suspect]
  7. FLUOXETINE [Suspect]
  8. CARBOPLATIN [Suspect]
     Indication: BRONCHIAL CARCINOMA
  9. PACLITAXEL [Suspect]
     Indication: BRONCHIAL CARCINOMA

REACTIONS (8)
  - ASTHENIA [None]
  - DIARRHOEA [None]
  - DRUG INTOLERANCE [None]
  - HYPOCAPNIA [None]
  - HYPOXIA [None]
  - INTERSTITIAL LUNG DISEASE [None]
  - LUNG NEOPLASM [None]
  - VERTIGO [None]
